FAERS Safety Report 17607632 (Version 1)
Quarter: 2020Q1

REPORT INFORMATION
  Report Type: Spontaneous
  Country: US (occurrence: US)
  Receive Date: 20200331
  Receipt Date: 20200331
  Transmission Date: 20200409
  Serious: No
  Sender: FDA-Public Use
  Company Number: US-JNJFOC-20200328595

PATIENT

DRUGS (2)
  1. WOMENS ROGAINE [Suspect]
     Active Substance: MINOXIDIL
     Indication: DIFFUSE ALOPECIA
     Route: 061
  2. WOMENS ROGAINE [Suspect]
     Active Substance: MINOXIDIL
     Indication: ALOPECIA

REACTIONS (6)
  - Application site pruritus [Unknown]
  - Erythema [Unknown]
  - Product use in unapproved indication [Unknown]
  - Application site dryness [Unknown]
  - Therapeutic response unexpected [Unknown]
  - Off label use [Unknown]
